FAERS Safety Report 6933037-9 (Version None)
Quarter: 2010Q3

REPORT INFORMATION
  Report Type: 
  Country: None (occurrence: None)
  Receive Date: 20100818
  Receipt Date: 20100818
  Transmission Date: 20110219
  Serious: Yes (Other)
  Sender: FDA-Public Use
  Company Number: None

PATIENT
  Age: 66 Year
  Sex: Female
  Weight: 68.0396 kg

DRUGS (2)
  1. REBIF [Suspect]
     Indication: MULTIPLE SCLEROSIS
     Dosage: 1 EVERY OTHER DAY SUBCUTANEOUS
     Route: 058
     Dates: start: 19980110, end: 20011001
  2. THYROID [Concomitant]

REACTIONS (2)
  - ABSCESS STERILE [None]
  - INJECTION SITE REACTION [None]
